FAERS Safety Report 8257965 (Version 2)
Quarter: 2012Q4

REPORT INFORMATION
  Report Type: 
  Country: US (occurrence: US)
  Receive Date: 20111121
  Receipt Date: 20121115
  Transmission Date: 20130627
  Serious: Yes (Other)
  Sender: FDA-Public Use
  Company Number: US-AMGEN-USASP2011021167

PATIENT
  Age: 75 Year
  Sex: Male
  Weight: 80.73 kg

DRUGS (4)
  1. VECTIBIX [Suspect]
     Indication: COLORECTAL CANCER
     Dosage: 505 mg, q2wk
     Route: 042
     Dates: start: 20110323, end: 20110623
  2. XELODA [Concomitant]
     Indication: COLON CANCER
     Dosage: 1000 mg, bid
     Route: 048
     Dates: start: 20110616, end: 20110630
  3. MAGNESIUM [Concomitant]
     Indication: HYPOMAGNESAEMIA
     Dosage: 3 g, UNK
     Route: 042
     Dates: start: 20110323, end: 20110623
  4. ATIVAN [Concomitant]
     Indication: CHILLS
     Dosage: 0.5 mg, UNK
     Dates: start: 20110405

REACTIONS (2)
  - Chills [Recovered/Resolved]
  - Dyspnoea [Recovered/Resolved]
